FAERS Safety Report 17665468 (Version 2)
Quarter: 2020Q2

REPORT INFORMATION
  Report Type: Spontaneous
  Country: US (occurrence: US)
  Receive Date: 20200414
  Receipt Date: 20200529
  Transmission Date: 20200713
  Serious: No
  Sender: FDA-Public Use
  Company Number: US-VERTEX PHARMACEUTICALS-2020-008471

PATIENT
  Age: 42 Year
  Sex: Female

DRUGS (1)
  1. TRIKAFTA [Suspect]
     Active Substance: ELEXACAFTOR\IVACAFTOR\TEZACAFTOR
     Indication: CYSTIC FIBROSIS
     Dosage: 2 ORANGE TABLETS(100/ 50/ 75 MG) AM AND 1 BLUE TABLET (150 MG) PM
     Route: 048
     Dates: start: 20200318

REACTIONS (4)
  - Cough [Unknown]
  - Diarrhoea [Recovering/Resolving]
  - Eye irritation [Unknown]
  - Weight increased [Not Recovered/Not Resolved]

NARRATIVE: CASE EVENT DATE: 2020
